FAERS Safety Report 20596679 (Version 1)
Quarter: 2022Q1

REPORT INFORMATION
  Report Type: Spontaneous
  Country: US (occurrence: None)
  Receive Date: 20220315
  Receipt Date: 20220315
  Transmission Date: 20220423
  Serious: No
  Sender: FDA-Public Use
  Company Number: None

PATIENT
  Age: 70 Year
  Sex: Male
  Weight: 131.54 kg

DRUGS (1)
  1. SKYRIZI [Suspect]
     Active Substance: RISANKIZUMAB-RZAA
     Indication: Psoriasis
     Dosage: FREQUENCY : MONTHLY;?INJECT 150MG (2 SYRINGES) SUBCUTANEOUSLY AT WEEK 0?AND W EEK 4 AS DIRECTED.?
     Route: 058
     Dates: start: 202005

REACTIONS (2)
  - Large intestinal obstruction [None]
  - Gastric infection [None]
